FAERS Safety Report 10707997 (Version 4)
Quarter: 2015Q1

REPORT INFORMATION
  Report Type: Spontaneous
  Country: US (occurrence: US)
  Receive Date: 20150113
  Receipt Date: 20150220
  Transmission Date: 20150721
  Serious: Yes (Other)
  Sender: FDA-Public Use
  Company Number: US-PFIZER INC-2015009025

PATIENT
  Age: 72 Year
  Sex: Female
  Weight: 71 kg

DRUGS (13)
  1. LYRICA [Suspect]
     Active Substance: PREGABALIN
     Dosage: 75 MG, 2X/DAY
  2. FLEXERIL [Concomitant]
     Active Substance: CYCLOBENZAPRINE HYDROCHLORIDE
     Indication: NECK PAIN
     Dosage: 10 MG, AS NEEDED
  3. LYRICA [Suspect]
     Active Substance: PREGABALIN
     Indication: FIBROMYALGIA
     Dosage: 50 MG, UNK
     Dates: start: 2011
  4. LIDOCAINE. [Concomitant]
     Active Substance: LIDOCAINE
     Indication: SPINAL OSTEOARTHRITIS
     Dosage: UNK
     Dates: start: 201408, end: 20141125
  5. LYRICA [Suspect]
     Active Substance: PREGABALIN
     Dosage: 150 MG, 3X/DAY
  6. PREMARIN [Suspect]
     Active Substance: ESTROGENS, CONJUGATED
     Indication: OESTROGEN THERAPY
     Dosage: 1 G, 2X/WEEK
     Route: 067
     Dates: start: 2012
  7. TOVIAZ [Concomitant]
     Active Substance: FESOTERODINE FUMARATE
     Indication: URINARY INCONTINENCE
     Dosage: 8 MG, 1X/DAY
     Dates: start: 2012
  8. LIDOCAINE. [Concomitant]
     Active Substance: LIDOCAINE
     Indication: FIBROMYALGIA
  9. LIDOCAINE. [Concomitant]
     Active Substance: LIDOCAINE
     Indication: ARTHROPATHY
  10. LYRICA [Suspect]
     Active Substance: PREGABALIN
     Dosage: 75 MG, UNK
  11. CALCIUM PLUS D [Concomitant]
     Active Substance: CALCIUM\VITAMIN D
     Indication: OSTEOPOROSIS
     Dosage: UNK
  12. FLEXERIL [Concomitant]
     Active Substance: CYCLOBENZAPRINE HYDROCHLORIDE
     Indication: HEADACHE
  13. LIDOCAINE. [Concomitant]
     Active Substance: LIDOCAINE
     Indication: MYALGIA

REACTIONS (21)
  - Fall [Recovered/Resolved]
  - Post-traumatic neck syndrome [Unknown]
  - Fibula fracture [Unknown]
  - Fibromyalgia [Recovered/Resolved]
  - Burning sensation [Recovered/Resolved]
  - Impaired driving ability [Unknown]
  - Neck injury [Unknown]
  - Spinal column injury [Unknown]
  - Concussion [Recovered/Resolved]
  - Head injury [Unknown]
  - Arthritis [Unknown]
  - Road traffic accident [Recovered/Resolved with Sequelae]
  - Speech disorder [Unknown]
  - Injury [Unknown]
  - Hypersensitivity [Unknown]
  - Tibia fracture [Unknown]
  - Vestibular ischaemia [Unknown]
  - Mobility decreased [Recovered/Resolved]
  - Road traffic accident [Unknown]
  - Gait disturbance [Unknown]
  - Motor dysfunction [Unknown]

NARRATIVE: CASE EVENT DATE: 2011
